FAERS Safety Report 16198419 (Version 2)
Quarter: 2019Q3

REPORT INFORMATION
  Report Type: Spontaneous
  Country: JP (occurrence: JP)
  Receive Date: 20190415
  Receipt Date: 20190719
  Transmission Date: 20191004
  Serious: Yes (Death, Hospitalization, Other)
  Sender: FDA-Public Use
  Company Number: PHJP2019JP004359

PATIENT
  Age: 58 Year
  Sex: Male

DRUGS (1)
  1. VOTRIENT [Suspect]
     Active Substance: PAZOPANIB HYDROCHLORIDE
     Indication: METASTATIC RENAL CELL CARCINOMA
     Dosage: UNK
     Route: 048

REACTIONS (8)
  - Drug-induced liver injury [Recovered/Resolved]
  - Abdominal pain upper [Unknown]
  - Hyperthyroidism [Recovering/Resolving]
  - Neck pain [Recovering/Resolving]
  - Thyroiditis subacute [Unknown]
  - Death [Fatal]
  - Goitre [Unknown]
  - Nausea [Unknown]
